FAERS Safety Report 19360985 (Version 1)
Quarter: 2021Q2

REPORT INFORMATION
  Report Type: Report from Study
  Country: None (occurrence: US)
  Receive Date: 20210602
  Receipt Date: 20210602
  Transmission Date: 20210717
  Serious: Yes (Hospitalization)
  Sender: FDA-Public Use
  Company Number: US-MDD US OPERATIONS-USW202001-000126

PATIENT
  Age: 59 Year
  Sex: Male
  Weight: 113.39 kg

DRUGS (7)
  1. APOKYN [Suspect]
     Active Substance: APOMORPHINE HYDROCHLORIDE
     Dosage: MORE THAN 10 DOSES
     Dates: start: 20190923
  2. APOKYN [Suspect]
     Active Substance: APOMORPHINE HYDROCHLORIDE
     Dosage: 3ML CARTRIDGE 1 EA CART
     Route: 058
  3. APOKYN [Suspect]
     Active Substance: APOMORPHINE HYDROCHLORIDE
     Indication: PARKINSON^S DISEASE
     Dosage: STRENGTH: 30 MG / 3 ML; 0.2 ML
     Route: 058
     Dates: start: 2019, end: 20200112
  4. LASIX [Concomitant]
     Active Substance: FUROSEMIDE
     Dosage: UNKNOWN
  5. SINEMET [Concomitant]
     Active Substance: CARBIDOPA\LEVODOPA
     Dosage: UNKNOWN
  6. APOKYN [Suspect]
     Active Substance: APOMORPHINE HYDROCHLORIDE
     Dosage: 30MG/3ML, 0.3ML AS NEEDED NOT TO EXCEED THREE DOSES PER DAY
     Route: 058
     Dates: start: 20190710, end: 20200109
  7. REQUIP [Concomitant]
     Active Substance: ROPINIROLE HYDROCHLORIDE
     Dosage: UNKNOWN

REACTIONS (7)
  - Hospitalisation [Unknown]
  - Illness [Unknown]
  - Generalised oedema [Recovered/Resolved]
  - Hypotension [Unknown]
  - Dyspnoea [Recovered/Resolved]
  - Peripheral swelling [Unknown]
  - Dizziness [Recovered/Resolved]

NARRATIVE: CASE EVENT DATE: 20191101
